FAERS Safety Report 9376121 (Version 1)
Quarter: 2013Q2

REPORT INFORMATION
  Report Type: Spontaneous
  Country: US (occurrence: None)
  Receive Date: 20130628
  Receipt Date: 20130628
  Transmission Date: 20140414
  Serious: No
  Sender: FDA-Public Use
  Company Number: None

PATIENT
  Age: 74 Year
  Sex: Female
  Weight: 61.69 kg

DRUGS (16)
  1. MINOCYCLINE [Suspect]
     Indication: ROSEOLA
     Route: 048
     Dates: start: 20130531, end: 20130610
  2. CLARITIN D [Concomitant]
  3. LISINOPRIL [Concomitant]
  4. ASPIRIN [Concomitant]
  5. MULTIVITAMIN [Concomitant]
  6. AROMASIN (EXEMESTANE) [Concomitant]
  7. AMLOPDIPINE [Concomitant]
  8. K-DUR (KLOR CON) [Concomitant]
  9. GALANTAMINE [Concomitant]
  10. LEVETIRACETAM [Concomitant]
  11. PRAVASTATIN [Concomitant]
  12. GALANTAMIDE [Concomitant]
  13. ZOLPIDEM [Concomitant]
  14. FLONASE [Concomitant]
  15. PHENERGAN [Concomitant]
  16. CLONAZEPAM [Concomitant]

REACTIONS (9)
  - Dyspnoea [None]
  - Nausea [None]
  - Vomiting [None]
  - Fatigue [None]
  - Asthenia [None]
  - Decreased appetite [None]
  - Confusional state [None]
  - Discomfort [None]
  - Dysuria [None]
